FAERS Safety Report 9364138 (Version 2)
Quarter: 2014Q2

REPORT INFORMATION
  Report Type: Spontaneous
  Country: FR (occurrence: FR)
  Receive Date: 20130624
  Receipt Date: 20140522
  Transmission Date: 20141212
  Serious: Yes (Life-Threatening)
  Sender: FDA-Public Use
  Company Number: FR-ASTRAZENECA-2013SE47289

PATIENT
  Age: 23781 Day
  Sex: Male

DRUGS (8)
  1. XYLOCAINE [Suspect]
     Route: 065
     Dates: start: 20130611, end: 20130611
  2. XYLOCAINE NAPHAZOLINE [Suspect]
     Dosage: ONCE/SINGLE ADMINISTRATION
     Route: 003
     Dates: start: 20130611, end: 20130611
  3. PROPOFOL [Suspect]
     Dosage: ONCE/SINGLE ADMINISTRATION
     Route: 042
     Dates: start: 20130611, end: 20130611
  4. REMIFENTANIL MYLAN [Suspect]
     Dosage: ONCE/SINGLE ADMINISTRATION
     Route: 042
     Dates: start: 20130611, end: 20130611
  5. MIDAZOLAM [Suspect]
     Route: 065
     Dates: start: 20130611, end: 20130611
  6. TAGAMET [Suspect]
     Route: 048
  7. AUGMENTIN [Concomitant]
     Indication: ANTIBIOTIC PROPHYLAXIS
     Dates: start: 201210
  8. AUGMENTIN [Concomitant]
     Indication: ANTIBIOTIC PROPHYLAXIS
     Dates: start: 20130604

REACTIONS (1)
  - Anaphylactic shock [Recovered/Resolved]
